FAERS Safety Report 7396608-4 (Version None)
Quarter: 2011Q2

REPORT INFORMATION
  Report Type: 
  Country: None (occurrence: None)
  Receive Date: 20110406
  Receipt Date: 20110322
  Transmission Date: 20111010
  Serious: Yes (Hospitalization)
  Sender: FDA-Public Use
  Company Number: PHHY2010JP70398

PATIENT
  Sex: Female
  Weight: 43 kg

DRUGS (7)
  1. EXJADE [Suspect]
     Indication: IRON OVERLOAD
     Dosage: 500 MG, QD
     Route: 048
     Dates: start: 20100413, end: 20100512
  2. LASIX [Concomitant]
     Dosage: 40 MG, UNK
     Route: 048
     Dates: start: 20090916, end: 20100512
  3. PRIMOBOLAN [Concomitant]
     Indication: MYELOFIBROSIS
     Dosage: 20 MG, UNK
     Route: 048
     Dates: start: 20091222, end: 20100512
  4. RED CELLS MAP [Concomitant]
     Dosage: 2 UNITS EVERY 2 WEEKS
  5. BLOPRESS [Concomitant]
     Dosage: 4 MG, UNK
     Route: 048
     Dates: start: 20090916, end: 20100512
  6. TAKEPRON [Concomitant]
     Dosage: 15 MG, UNK
     Route: 048
     Dates: start: 20090916, end: 20100512
  7. LENDORMIN [Concomitant]
     Dosage: 0.25 MG, UNK
     Route: 048
     Dates: start: 20090916, end: 20100512

REACTIONS (4)
  - ABDOMINAL PAIN [None]
  - DIARRHOEA [None]
  - GASTROENTERITIS [None]
  - LIVER DISORDER [None]
